FAERS Safety Report 6697997-6 (Version None)
Quarter: 2010Q2

REPORT INFORMATION
  Report Type: 
  Country: None (occurrence: None)
  Receive Date: 20100427
  Receipt Date: 20100422
  Transmission Date: 20101027
  Serious: Yes (Death, Other)
  Sender: FDA-Public Use
  Company Number: JP-JNJFOC-20100308223

PATIENT
  Sex: Male
  Weight: 48 kg

DRUGS (5)
  1. DUROTEP MT [Suspect]
     Indication: CANCER PAIN
     Route: 062
  2. DUROTEP MT [Suspect]
     Route: 062
  3. LASIX [Concomitant]
     Route: 065
  4. DEPAS [Concomitant]
     Dosage: PERORAL MEDICINE
     Route: 048
  5. FLUID THERAPY [Concomitant]
     Route: 065

REACTIONS (2)
  - FACIAL PALSY [None]
  - MALIGNANT NEOPLASM PROGRESSION [None]
